FAERS Safety Report 8824629 (Version 1)
Quarter: 2012Q4

REPORT INFORMATION
  Report Type: 
  Country: US (occurrence: US)
  Receive Date: 20121004
  Receipt Date: 20121004
  Transmission Date: 20130627
  Serious: Yes (Other)
  Sender: FDA-Public Use
  Company Number: PHEH2012US018910

PATIENT
  Sex: Male

DRUGS (4)
  1. EXELON PATCH [Suspect]
     Dosage: 4.6 mg, daily
     Route: 062
     Dates: start: 20120901, end: 20120904
  2. NAMENDA [Concomitant]
  3. CARVEDILOL [Concomitant]
  4. TAMSULOSIN [Concomitant]

REACTIONS (7)
  - Prostatomegaly [Unknown]
  - Pollakiuria [Unknown]
  - Renal disorder [Unknown]
  - Dementia [Unknown]
  - Pain in extremity [Unknown]
  - Myalgia [Unknown]
  - Tremor [Unknown]
